FAERS Safety Report 5124741-6 (Version None)
Quarter: 2006Q4

REPORT INFORMATION
  Report Type: 
  Country: None (occurrence: None)
  Receive Date: 20061006
  Receipt Date: 20060922
  Transmission Date: 20070319
  Serious: Yes (Other)
  Sender: FDA-Public Use
  Company Number: DEWYE998322SEP06

PATIENT
  Age: 2 Day
  Sex: Male

DRUGS (1)
  1. VENLAFAXINE HCL [Suspect]
     Dosage: 75 MG PER DAY; TRANSPLACENTAL
     Route: 064

REACTIONS (4)
  - DRUG EXPOSURE DURING PREGNANCY [None]
  - DRUG WITHDRAWAL SYNDROME NEONATAL [None]
  - HYPERTONIA NEONATAL [None]
  - NERVOUSNESS [None]
